FAERS Safety Report 4641179-6 (Version None)
Quarter: 2005Q2

REPORT INFORMATION
  Report Type: 
  Country: None (occurrence: None)
  Receive Date: 20050419
  Receipt Date: 20050419
  Transmission Date: 20051028
  Serious: No
  Sender: FDA-Public Use
  Company Number: None

PATIENT
  Age: 64 Year
  Sex: Male

DRUGS (5)
  1. INTAL [Suspect]
     Indication: ASTHMA
     Dosage: INHALE 2 PUFFS 3 TO 4 TIMES DAILY AS NEEDED FOR COUGH
     Route: 055
  2. INTAL [Suspect]
  3. ALBUTEROL [Concomitant]
  4. ATENOLOL [Concomitant]
  5. TRIAMTERENE AND HYDROCHLOROTHIAZIDE [Concomitant]

REACTIONS (4)
  - COUGH [None]
  - DYSPNOEA [None]
  - FEELING ABNORMAL [None]
  - PHARMACEUTICAL PRODUCT COMPLAINT [None]
